FAERS Safety Report 17711486 (Version 1)
Quarter: 2020Q2

REPORT INFORMATION
  Report Type: Spontaneous
  Country: IT (occurrence: IT)
  Receive Date: 20200427
  Receipt Date: 20200427
  Transmission Date: 20200714
  Serious: Yes (Other)
  Sender: FDA-Public Use
  Company Number: NVSC2020IT110066

PATIENT
  Age: 63 Year
  Sex: Male

DRUGS (7)
  1. TWICE [Concomitant]
     Indication: PRODUCT USED FOR UNKNOWN INDICATION
     Route: 065
  2. FLUOROURACILE AHCL [Suspect]
     Active Substance: FLUOROURACIL
     Indication: RECTAL NEOPLASM
     Route: 042
     Dates: start: 20190314, end: 20190528
  3. OXALIPLATIN. [Suspect]
     Active Substance: OXALIPLATIN
     Indication: RECTAL NEOPLASM
     Route: 042
     Dates: start: 20190314, end: 20190529
  4. ZARZIO [Concomitant]
     Active Substance: FILGRASTIM
     Indication: PRODUCT USED FOR UNKNOWN INDICATION
     Dosage: UNK
     Route: 065
  5. ONDANSETRONE ACCORD HEALTHCARE [Concomitant]
     Active Substance: ONDANSETRON HYDROCHLORIDE
     Indication: PRODUCT USED FOR UNKNOWN INDICATION
     Route: 065
  6. PLASIL [Concomitant]
     Active Substance: METOCLOPRAMIDE HYDROCHLORIDE
     Indication: PRODUCT USED FOR UNKNOWN INDICATION
     Route: 065
  7. LOPERAMIDE HEXAL [Concomitant]
     Active Substance: LOPERAMIDE HYDROCHLORIDE
     Indication: PRODUCT USED FOR UNKNOWN INDICATION
     Route: 065

REACTIONS (8)
  - Hypersensitivity [Unknown]
  - Phlebitis [Unknown]
  - Dysgeusia [Unknown]
  - Asthenia [Unknown]
  - Nausea [Unknown]
  - Neutropenia [Unknown]
  - Dry skin [Unknown]
  - Insomnia [Unknown]

NARRATIVE: CASE EVENT DATE: 20190414
